FAERS Safety Report 4279704-X (Version None)
Quarter: 2004Q1

REPORT INFORMATION
  Report Type: 
  Country: None (occurrence: None)
  Receive Date: 20040123
  Receipt Date: 20040107
  Transmission Date: 20041129
  Serious: Yes (Hospitalization)
  Sender: FDA-Public Use
  Company Number: DEWYE425726NOV03

PATIENT
  Age: 52 Year
  Sex: Male

DRUGS (19)
  1. VENLAFAXINE HCL [Suspect]
     Dosage: SEE IMAGE
     Route: 048
     Dates: start: 20030922, end: 20030923
  2. VENLAFAXINE HCL [Suspect]
     Dosage: SEE IMAGE
     Route: 048
     Dates: start: 20030924, end: 20030929
  3. VENLAFAXINE HCL [Suspect]
     Dosage: SEE IMAGE
     Route: 048
     Dates: start: 20030930, end: 20031006
  4. VENLAFAXINE HCL [Suspect]
     Dosage: SEE IMAGE
     Route: 048
     Dates: start: 20031007, end: 20031008
  5. VENLAFAXINE HCL [Suspect]
     Dosage: SEE IMAGE
     Route: 048
     Dates: start: 20031009, end: 20031014
  6. VENLAFAXINE HCL [Suspect]
     Dosage: SEE IMAGE
     Route: 048
     Dates: start: 20031015, end: 20031026
  7. BELOC ZOK (METOPROLOL SUCCINATE, 0) [Suspect]
     Dosage: SEE IMAGE
     Route: 048
     Dates: start: 20030913, end: 20030918
  8. BELOC ZOK (METOPROLOL SUCCINATE, 0) [Suspect]
     Dosage: SEE IMAGE
     Route: 048
     Dates: start: 20030919
  9. MIRTAZAPINE [Suspect]
     Dosage: SEE IMAGE
     Route: 048
     Dates: start: 20030821, end: 20030903
  10. MIRTAZAPINE [Suspect]
     Dosage: SEE IMAGE
     Route: 048
     Dates: start: 20030904
  11. RISPERDAL [Suspect]
     Dosage: 2MG
     Route: 048
     Dates: start: 20030821
  12. LORAZEPAM [Suspect]
     Dosage: SEE IMAGE
     Route: 048
     Dates: start: 20030821, end: 20030910
  13. LORAZEPAM [Suspect]
     Dosage: SEE IMAGE
     Route: 048
     Dates: start: 20031109, end: 20030915
  14. LORAZEPAM [Suspect]
     Dosage: SEE IMAGE
     Route: 048
     Dates: start: 20030916, end: 20030928
  15. LORAZEPAM [Suspect]
     Dosage: SEE IMAGE
     Route: 048
     Dates: start: 20030929, end: 20031006
  16. LORAZEPAM [Suspect]
     Dosage: SEE IMAGE
     Route: 048
     Dates: start: 20031007, end: 20031016
  17. LORAZEPAM [Suspect]
     Dosage: SEE IMAGE
     Route: 048
     Dates: start: 20031017
  18. QUILONUM - SLOW RELEASE (LITHIUM CARBONATE) [Concomitant]
  19. CHLORALDURAT (CHLORAL HYDRATE) [Concomitant]

REACTIONS (4)
  - ALANINE AMINOTRANSFERASE INCREASED [None]
  - DRUG INTERACTION [None]
  - GAMMA-GLUTAMYLTRANSFERASE INCREASED [None]
  - HEPATIC ENZYME INCREASED [None]
